FAERS Safety Report 4586182-X (Version None)
Quarter: 2005Q1

REPORT INFORMATION
  Report Type: 
  Country: None (occurrence: None)
  Receive Date: 20050125
  Receipt Date: 20041020
  Transmission Date: 20050727
  Serious: No
  Sender: FDA-Public Use
  Company Number: USA041081636

PATIENT
  Age: 61 Year
  Sex: Female
  Weight: 68 kg

DRUGS (1)
  1. FORTEO [Suspect]
     Indication: FRACTURE
     Dosage: 20 UG/L DAY
     Dates: start: 20040601

REACTIONS (3)
  - BLOOD CALCIUM DECREASED [None]
  - MUSCLE TWITCHING [None]
  - VITAMIN D DECREASED [None]
